FAERS Safety Report 5024155-3 (Version None)
Quarter: 2006Q2

REPORT INFORMATION
  Report Type: 
  Country: None (occurrence: None)
  Receive Date: 20060607
  Receipt Date: 20060603
  Transmission Date: 20061013
  Serious: Yes (Death)
  Sender: FDA-Public Use
  Company Number: 218595

PATIENT
  Age: 76 Year
  Sex: Female
  Weight: 75 kg

DRUGS (10)
  1. AVASTIN [Suspect]
     Indication: COLORECTAL CANCER METASTATIC
     Dosage: 5 MG/KG, Q2W, INTRAVENOUS
     Route: 042
     Dates: start: 20050921, end: 20050921
  2. OXALIPLATIN (OXALIPLATIN) [Suspect]
     Indication: COLORECTAL CANCER METASTATIC
     Dosage: 85 MG/M2, Q2W, INTRAVENOUS
     Route: 042
     Dates: start: 20050921, end: 20050921
  3. FLUOROURACIL [Suspect]
     Indication: COLORECTAL CANCER METASTATIC
     Dosage: 2400 MG/M2, Q2W, INTRAVENOUS
     Route: 042
     Dates: start: 20050921, end: 20050923
  4. LEUCOVORIN CALCIUM [Suspect]
     Indication: COLORECTAL CANCER METASTATIC
     Dosage: 200 MG/M2, Q2W, INTRAVENOUS
     Route: 042
     Dates: start: 20050921, end: 20050921
  5. CALCIUM/MAGNESIUM OR PLACEBO (CALCIUM/MAGNESIUM OR PLACEBO) [Suspect]
     Dosage: 1 UNIT, Q2W, INTRAVENOUS
     Route: 042
     Dates: start: 20050921, end: 20050921
  6. HYDROCHLOROTHIAZIDE [Concomitant]
  7. PROCHLORPERAZINE EDISYLATE [Concomitant]
  8. IMIPRAMINE [Concomitant]
  9. BENICAR [Concomitant]
  10. EMEND [Concomitant]

REACTIONS (15)
  - ABDOMINAL PAIN [None]
  - ASCITES [None]
  - ASTHENIA [None]
  - BLOOD BICARBONATE DECREASED [None]
  - BLOOD GLUCOSE INCREASED [None]
  - BLOOD PRESSURE DIASTOLIC DECREASED [None]
  - BLOOD SODIUM DECREASED [None]
  - HEART RATE INCREASED [None]
  - MUCOSAL INFLAMMATION [None]
  - NAUSEA [None]
  - NEUTROPENIC SEPSIS [None]
  - PCO2 DECREASED [None]
  - SEDATION [None]
  - TENDERNESS [None]
  - VOMITING [None]
